FAERS Safety Report 6253165-3 (Version None)
Quarter: 2009Q2

REPORT INFORMATION
  Report Type: 
  Country: None (occurrence: None)
  Receive Date: 20090629
  Receipt Date: 20090629
  Transmission Date: 20091009
  Serious: No
  Sender: FDA-Public Use
  Company Number: None

PATIENT
  Age: 57 Year
  Sex: Female
  Weight: 53.0709 kg

DRUGS (1)
  1. ZICAM SWAB ZINCUM GLUCONIUCUM MATRBOX [Suspect]
     Indication: NASOPHARYNGITIS
     Dosage: 1 GEL SWAB 2-3X PER DAY ENDOSINUSIAL
     Route: 006
     Dates: start: 20060301, end: 20090401

REACTIONS (4)
  - HYPOGEUSIA [None]
  - HYPOSMIA [None]
  - INFLAMMATION [None]
  - NERVE INJURY [None]
